FAERS Safety Report 7949106-0 (Version None)
Quarter: 2011Q4

REPORT INFORMATION
  Report Type: 
  Country: None (occurrence: None)
  Receive Date: 20111130
  Receipt Date: 20111125
  Transmission Date: 20120403
  Serious: Yes (Congenital Anomaly, Other)
  Sender: FDA-Public Use
  Company Number: DE-ABBOTT-11P-062-0876729-00

PATIENT

DRUGS (2)
  1. PREDNISOLONE [Suspect]
     Indication: MATERNAL EXPOSURE TIMING UNSPECIFIED
     Route: 064
  2. HUMIRA [Suspect]
     Indication: MATERNAL EXPOSURE TIMING UNSPECIFIED
     Route: 064

REACTIONS (11)
  - SYNDACTYLY [None]
  - OESOPHAGEAL ATRESIA [None]
  - VENTRICULAR SEPTAL DEFECT [None]
  - ATRIAL SEPTAL DEFECT [None]
  - HYPOTONIA [None]
  - APNOEA [None]
  - OXYGEN SATURATION DECREASED [None]
  - SMALL FOR DATES BABY [None]
  - PULMONARY ARTERY STENOSIS CONGENITAL [None]
  - FOETAL EXPOSURE DURING PREGNANCY [None]
  - DEVICE RELATED INFECTION [None]
